FAERS Safety Report 5228836-8 (Version None)
Quarter: 2007Q1

REPORT INFORMATION
  Report Type: 
  Country: None (occurrence: None)
  Receive Date: 20061201
  Receipt Date: 20061002
  Transmission Date: 20070707
  Serious: No
  Sender: FDA-Public Use
  Company Number: US200610000466

PATIENT
  Age: 53 Year
  Sex: Male

DRUGS (2)
  1. CYMBALTA [Suspect]
     Indication: DEPRESSION
     Dosage: SEE IMAGE
     Dates: start: 20060901
  2. LEVOTHYROXINE SODIUM [Concomitant]

REACTIONS (9)
  - ANXIETY [None]
  - DISTURBANCE IN ATTENTION [None]
  - DRY MOUTH [None]
  - FEAR [None]
  - HOT FLUSH [None]
  - HYPERHIDROSIS [None]
  - PANIC ATTACK [None]
  - TREMOR [None]
  - WEIGHT INCREASED [None]
